FAERS Safety Report 5258890-9 (Version None)
Quarter: 2007Q1

REPORT INFORMATION
  Report Type: 
  Country: None (occurrence: None)
  Receive Date: 20070308
  Receipt Date: 20061128
  Transmission Date: 20070707
  Serious: Yes (Death, Life-Threatening)
  Sender: FDA-Public Use
  Company Number: BE-MERCK-0611BEL00039

PATIENT
  Age: 84 Year
  Sex: Female
  Weight: 52 kg

DRUGS (8)
  1. AGGRASTAT [Suspect]
     Indication: ANGINA UNSTABLE
     Route: 042
     Dates: start: 20060818, end: 20060818
  2. AGGRASTAT [Suspect]
     Route: 042
     Dates: start: 20060818, end: 20060821
  3. ASPIRIN [Concomitant]
     Indication: PROPHYLAXIS
     Route: 048
  4. CLOPIDOGREL BISULFATE [Concomitant]
     Indication: ANGINA UNSTABLE
     Route: 065
  5. HEPARIN [Concomitant]
     Indication: ANGIOGRAM
     Route: 042
     Dates: start: 20060822
  6. ASPIRIN LYSINE [Concomitant]
     Indication: ANGINA UNSTABLE
     Route: 041
     Dates: start: 20060818, end: 20060818
  7. ENOXAPARIN SODIUM [Concomitant]
     Indication: ANGINA UNSTABLE
     Route: 058
     Dates: start: 20060818
  8. METFORMIN [Concomitant]
     Indication: DIABETES MELLITUS
     Route: 065

REACTIONS (1)
  - ELECTROMECHANICAL DISSOCIATION [None]
